FAERS Safety Report 20529306 (Version 1)
Quarter: 2022Q1

REPORT INFORMATION
  Report Type: Spontaneous
  Country: US (occurrence: US)
  Receive Date: 20220228
  Receipt Date: 20220228
  Transmission Date: 20220423
  Serious: No
  Sender: FDA-Public Use
  Company Number: US-009507513-2202USA005094

PATIENT
  Age: 33 Year
  Sex: Male

DRUGS (5)
  1. KEYTRUDA [Suspect]
     Active Substance: PEMBROLIZUMAB
     Indication: Squamous cell carcinoma of lung
  2. KEYTRUDA [Suspect]
     Active Substance: PEMBROLIZUMAB
     Indication: NUT midline carcinoma
  3. CARBOPLATIN [Concomitant]
     Active Substance: CARBOPLATIN
     Indication: Squamous cell carcinoma of lung
  4. CARBOPLATIN [Concomitant]
     Active Substance: CARBOPLATIN
     Indication: NUT midline carcinoma
  5. ABRAXANE [Concomitant]
     Active Substance: PACLITAXEL
     Indication: NUT midline carcinoma

REACTIONS (1)
  - Product use in unapproved indication [Unknown]
